FAERS Safety Report 19806414 (Version 2)
Quarter: 2021Q3

REPORT INFORMATION
  Report Type: Report from Study
  Country: US (occurrence: US)
  Receive Date: 20210909
  Receipt Date: 20210917
  Transmission Date: 20211014
  Serious: Yes (Death, Other)
  Sender: FDA-Public Use
  Company Number: US-BIOVITRUM-DOV-001021

PATIENT
  Age: 85 Year
  Sex: Male

DRUGS (2)
  1. DOPTELET [Suspect]
     Active Substance: AVATROMBOPAG MALEATE
     Dosage: 20 MILLIGRAM, QD
     Route: 048
     Dates: start: 20210525, end: 20210907
  2. DOPTELET [Suspect]
     Active Substance: AVATROMBOPAG MALEATE
     Indication: IMMUNE THROMBOCYTOPENIA
     Dosage: 20 MILLIGRAM, QD
     Route: 048

REACTIONS (5)
  - Respiratory failure [Fatal]
  - Cardio-respiratory arrest [Fatal]
  - COVID-19 [Fatal]
  - Acute respiratory distress syndrome [Fatal]
  - Platelet count decreased [Unknown]

NARRATIVE: CASE EVENT DATE: 20210525
